FAERS Safety Report 9368822 (Version 2)
Quarter: 2013Q4

REPORT INFORMATION
  Report Type: Spontaneous
  Country: PT (occurrence: PT)
  Receive Date: 20130626
  Receipt Date: 20131002
  Transmission Date: 20140711
  Serious: Yes (Other)
  Sender: FDA-Public Use
  Company Number: PT-ROCHE-1241247

PATIENT
  Sex: Male

DRUGS (2)
  1. PEGASYS [Suspect]
     Indication: HEPATITIS B
     Dosage: PRE-FILLED PEN
     Route: 058
  2. TENOFOVIR [Concomitant]
     Indication: HEPATITIS B

REACTIONS (1)
  - Syphilis [Unknown]
